FAERS Safety Report 6144968-4 (Version None)
Quarter: 2009Q2

REPORT INFORMATION
  Report Type: 
  Country: None (occurrence: None)
  Receive Date: 20090402
  Receipt Date: 20090402
  Transmission Date: 20091009
  Serious: No
  Sender: FDA-Public Use
  Company Number: None

PATIENT
  Sex: Female

DRUGS (2)
  1. GLEEVEC [Suspect]
     Indication: CHRONIC MYELOID LEUKAEMIA
     Dosage: 200 MG DAILY PO
     Route: 048
     Dates: start: 20090303, end: 20090330
  2. GLEEVEC [Suspect]
     Dosage: 400MG DAILY PO
     Route: 048
     Dates: start: 20090304, end: 20090330

REACTIONS (2)
  - NAUSEA [None]
  - PAIN [None]
